FAERS Safety Report 12562213 (Version 1)
Quarter: 2016Q3

REPORT INFORMATION
  Report Type: Spontaneous
  Country: AU (occurrence: AU)
  Receive Date: 20160715
  Receipt Date: 20160715
  Transmission Date: 20161109
  Serious: Yes (Other)
  Sender: FDA-Public Use
  Company Number: AU-ACTAVIS PTY LTD-2016-15392

PATIENT
  Age: 47 Year
  Sex: Female

DRUGS (3)
  1. IRBESARTAN. [Concomitant]
     Active Substance: IRBESARTAN
     Indication: HYPERTENSION
     Dosage: UNK
     Route: 065
  2. HOMATROPINE [Concomitant]
     Active Substance: HOMATROPINE\HOMATROPINE HYDROBROMIDE
     Indication: KERATITIS
     Dosage: IN RIGHT EYE
     Route: 047
  3. CIPROFLOXACIN HYDROCHLORIDE (UNKNOWN) [Suspect]
     Active Substance: CIPROFLOXACIN HYDROCHLORIDE
     Indication: KERATITIS
     Dosage: UNK UNK, Q1H
     Route: 047

REACTIONS (1)
  - Eye irritation [Unknown]
